FAERS Safety Report 5495079-2 (Version None)
Quarter: 2007Q4

REPORT INFORMATION
  Report Type: 
  Country: None (occurrence: None)
  Receive Date: 20071015
  Receipt Date: 20070212
  Transmission Date: 20080405
  Serious: Yes (Other)
  Sender: FDA-Public Use
  Company Number: S07-USA-00667-01

PATIENT
  Age: 37 Year
  Sex: Female

DRUGS (8)
  1. LEXAPRO [Suspect]
     Indication: ANXIETY
     Dosage: 10 MG QD PO
     Route: 048
     Dates: start: 20061201
  2. LEXAPRO [Suspect]
     Indication: DEPRESSION
     Dosage: 10 MG QD PO
     Route: 048
     Dates: start: 20061201
  3. LEXAPRO [Suspect]
     Indication: ANXIETY
     Dosage: 20 MG QD PO
     Route: 048
  4. LEXAPRO [Suspect]
     Indication: DEPRESSION
     Dosage: 20 MG QD PO
     Route: 048
  5. LEXAPRO [Suspect]
     Indication: ANXIETY
     Dosage: 30 MG QD PO
     Route: 048
     Dates: end: 20070205
  6. LEXAPRO [Suspect]
     Indication: DEPRESSION
     Dosage: 30 MG QD PO
     Route: 048
     Dates: end: 20070205
  7. KLONOPIN [Concomitant]
  8. SEROQUEL [Concomitant]

REACTIONS (7)
  - DRY MOUTH [None]
  - DYSPNOEA [None]
  - INSOMNIA [None]
  - PARAESTHESIA [None]
  - SINUSITIS [None]
  - SUICIDAL IDEATION [None]
  - WEIGHT INCREASED [None]
